FAERS Safety Report 24444520 (Version 5)
Quarter: 2025Q1

REPORT INFORMATION
  Report Type: Spontaneous
  Country: DE (occurrence: DE)
  Receive Date: 20241016
  Receipt Date: 20250128
  Transmission Date: 20250408
  Serious: Yes (Hospitalization, Other)
  Sender: DELCATH SYSTEMS
  Company Number: DE-DELCATH SYSTEMS-DELC-000003

PATIENT
  Age: 54 Year
  Sex: Female

DRUGS (2)
  1. MELPHALAN [Suspect]
     Active Substance: MELPHALAN
     Indication: Metastases to liver
     Route: 013
  2. MELPHALAN [Suspect]
     Active Substance: MELPHALAN
     Route: 013
     Dates: start: 20240920, end: 20240920

REACTIONS (2)
  - Device delivery system issue [Unknown]
  - Pancytopenia [Unknown]

NARRATIVE: CASE EVENT DATE: 20240920
